FAERS Safety Report 5423165-1 (Version None)
Quarter: 2007Q3

REPORT INFORMATION
  Report Type: 
  Country: None (occurrence: None)
  Receive Date: 20070821
  Receipt Date: 20070814
  Transmission Date: 20080115
  Serious: Yes (Death, Hospitalization)
  Sender: FDA-Public Use
  Company Number: 2007-162659-NL

PATIENT
  Age: 36 Year
  Sex: Female

DRUGS (4)
  1. FOLLITROPIN BETA [Suspect]
     Indication: ANOVULATORY CYCLE
     Dosage: INTRAMUSCULAR
     Route: 030
     Dates: start: 20060104, end: 20060501
  2. CHORIONIC GONADOTROPIN [Suspect]
     Indication: ANOVULATORY CYCLE
     Dosage: INTRAMUSCULAR
     Route: 030
     Dates: start: 20060104, end: 20060501
  3. PROGESTERONE [Suspect]
     Indication: ANOVULATORY CYCLE
     Dosage: VAGINAL
     Route: 067
     Dates: start: 20060221, end: 20060501
  4. PROGESTERONE [Concomitant]

REACTIONS (8)
  - DISEASE PROGRESSION [None]
  - GALLBLADDER ENLARGEMENT [None]
  - MALIGNANT NEOPLASM OF AMPULLA OF VATER [None]
  - METASTASES TO LIVER [None]
  - METASTASES TO LYMPH NODES [None]
  - NEUROENDOCRINE CARCINOMA [None]
  - RENAL CYST [None]
  - SUBILEUS [None]
